FAERS Safety Report 4438414-6 (Version None)
Quarter: 2004Q3

REPORT INFORMATION
  Report Type: 
  Country: None (occurrence: None)
  Receive Date: 20040728
  Receipt Date: 20040303
  Transmission Date: 20050211
  Serious: No
  Sender: FDA-Public Use
  Company Number: USA040360936

PATIENT
  Age: 8 Year
  Sex: Male
  Weight: 29 kg

DRUGS (6)
  1. STRATTERA [Suspect]
     Indication: IMPULSIVE BEHAVIOUR
     Dosage: 60 MG/L IN THE EVENING
     Dates: start: 20031201
  2. FLUOXETINE [Concomitant]
  3. FLUORIDE [Concomitant]
  4. MULTIVITAMIN [Concomitant]
  5. ADDERALL 10 [Concomitant]
  6. CLONIDINE HCL [Concomitant]

REACTIONS (4)
  - DRUG INEFFECTIVE [None]
  - PRESCRIBED OVERDOSE [None]
  - SOMNOLENCE [None]
  - STOMACH DISCOMFORT [None]
